FAERS Safety Report 8304798-1 (Version None)
Quarter: 2012Q2

REPORT INFORMATION
  Report Type: 
  Country: None (occurrence: None)
  Receive Date: 20120423
  Receipt Date: 20120412
  Transmission Date: 20120825
  Serious: Yes (Other)
  Sender: FDA-Public Use
  Company Number: US-ROCHE-1059208

PATIENT
  Sex: Female

DRUGS (4)
  1. RIBAVIRIN [Suspect]
     Dosage: DIVIDED DOSES
  2. PEGASYS [Suspect]
     Indication: HEPATITIS C
     Dates: start: 20111202
  3. RIBAVIRIN [Suspect]
     Indication: HEPATITIS C
     Dosage: DIVIDED DOSE
     Dates: start: 20111202
  4. TELAPREVIR [Suspect]
     Indication: HEPATITIS C

REACTIONS (1)
  - TRANSFUSION [None]
